FAERS Safety Report 4802792-6 (Version None)
Quarter: 2005Q4

REPORT INFORMATION
  Report Type: 
  Country: None (occurrence: None)
  Receive Date: 20051019
  Receipt Date: 20051005
  Transmission Date: 20060501
  Serious: Yes (Hospitalization)
  Sender: FDA-Public Use
  Company Number: 2005SE05687

PATIENT
  Age: 23014 Day
  Sex: Female

DRUGS (5)
  1. NEXIUM [Suspect]
     Indication: DYSPEPSIA
     Route: 048
  2. PANTOPRAZOLE SODIUM [Suspect]
     Indication: DYSPEPSIA
  3. LIORESAL TABLETS 10 [Concomitant]
  4. MARINOL 2.5 [Concomitant]
  5. ERCOQUIN TABLETS [Concomitant]
     Dates: start: 20050518, end: 20050530

REACTIONS (2)
  - CUTANEOUS LUPUS ERYTHEMATOSUS [None]
  - LIVER DISORDER [None]
